FAERS Safety Report 15369091 (Version 3)
Quarter: 2018Q3

REPORT INFORMATION
  Report Type: Report from Study
  Country: NL (occurrence: NL)
  Receive Date: 20180911
  Receipt Date: 20180919
  Transmission Date: 20181010
  Serious: Yes (Hospitalization)
  Sender: FDA-Public Use
  Company Number: NL-SUN PHARMACEUTICAL INDUSTRIES LTD-2018RR-180857

PATIENT
  Age: 53 Year
  Sex: Female
  Weight: 68 kg

DRUGS (3)
  1. GEMCITABINE [Suspect]
     Active Substance: GEMCITABINE\GEMCITABINE HYDROCHLORIDE
     Indication: PANCREATIC CARCINOMA
     Dosage: 93.75 MG/M2, 3X4 WEEKS
     Route: 042
     Dates: start: 20180316, end: 20180426
  2. ODOMZO [Suspect]
     Active Substance: SONIDEGIB
     Indication: PANCREATIC CARCINOMA
     Dosage: 200 MG, QD
     Route: 048
     Dates: start: 20180316, end: 20180507
  3. ABRAXANE [Suspect]
     Active Substance: PACLITAXEL
     Indication: PANCREATIC CARCINOMA
     Dosage: 750 MG/M2, 3X4 WEEKS
     Route: 042
     Dates: start: 20180316, end: 20180426

REACTIONS (1)
  - Ileus [Not Recovered/Not Resolved]
